FAERS Safety Report 11167729 (Version 1)
Quarter: 2015Q2

REPORT INFORMATION
  Report Type: Spontaneous
  Country: US (occurrence: None)
  Receive Date: 20150604
  Receipt Date: 20150604
  Transmission Date: 20150821
  Serious: Yes (Hospitalization)
  Sender: FDA-Public Use
  Company Number: None

PATIENT
  Age: 74 Year
  Sex: Male
  Weight: 82.4 kg

DRUGS (14)
  1. AZACITIDINE CELGENE [Suspect]
     Active Substance: AZACITIDINE
     Indication: MYELODYSPLASTIC SYNDROME
     Dosage: DAILY X5DAYSQ28DAY
     Route: 058
     Dates: start: 20150312, end: 20150413
  2. DIFLUCAN [Concomitant]
     Active Substance: FLUCONAZOLE
  3. BACTRIM DS [Concomitant]
     Active Substance: SULFAMETHOXAZOLE\TRIMETHOPRIM
  4. NORVASC [Concomitant]
     Active Substance: AMLODIPINE BESYLATE
  5. ACTIGALL [Concomitant]
     Active Substance: URSODIOL
  6. ZOFRAN [Concomitant]
     Active Substance: ONDANSETRON HYDROCHLORIDE
  7. VALPROIC ACID. [Suspect]
     Active Substance: VALPROIC ACID
     Indication: MYELODYSPLASTIC SYNDROME
     Dosage: 500 MG  AM  750 MG PM
     Route: 048
     Dates: start: 20150312, end: 20150405
  8. TRIAMCINOLONE ACETONIDE. [Concomitant]
     Active Substance: TRIAMCINOLONE ACETONIDE
  9. EFFEXOR [Concomitant]
     Active Substance: VENLAFAXINE HYDROCHLORIDE
  10. HYDROCORTISONE. [Concomitant]
     Active Substance: HYDROCORTISONE
  11. VISTARIL [Concomitant]
     Active Substance: HYDROXYZINE PAMOATE
  12. IMODIUM [Concomitant]
     Active Substance: LOPERAMIDE HYDROCHLORIDE
  13. MULTIPLE VITAMIN [Concomitant]
     Active Substance: VITAMINS
  14. ZANTAC [Concomitant]
     Active Substance: RANITIDINE HYDROCHLORIDE

REACTIONS (14)
  - Haemoglobin decreased [None]
  - Pyrexia [None]
  - White blood cell count decreased [None]
  - Bacterial test positive [None]
  - Oxygen saturation decreased [None]
  - Dehydration [None]
  - Sepsis [None]
  - Hypotension [None]
  - Drug intolerance [None]
  - Pleural effusion [None]
  - Skin abrasion [None]
  - Fall [None]
  - Fluid overload [None]
  - White blood cells urine positive [None]

NARRATIVE: CASE EVENT DATE: 20150502
